FAERS Safety Report 8566382-4 (Version None)
Quarter: 2012Q3

REPORT INFORMATION
  Report Type: 
  Country: None (occurrence: None)
  Receive Date: 20120803
  Receipt Date: 20111024
  Transmission Date: 20120928
  Serious: No
  Sender: FDA-Public Use
  Company Number: US-ABBOTT-11P-163-0868311-00

PATIENT
  Sex: Female

DRUGS (2)
  1. NIASPAN [Suspect]
     Indication: BLOOD CHOLESTEROL INCREASED
     Route: 048
     Dates: start: 20111017, end: 20111022
  2. UNKNOWN MEDICATION [Concomitant]
     Indication: HYPOTHYROIDISM
     Dosage: COMPOUNDED 120 MG AND 90 MG AND ALTERNATES DOSAGE STRENGTHS QOD

REACTIONS (5)
  - CHILLS [None]
  - FLUSHING [None]
  - FEELING HOT [None]
  - PRURITUS [None]
  - PARAESTHESIA [None]
